FAERS Safety Report 7952630-8 (Version None)
Quarter: 2011Q4

REPORT INFORMATION
  Report Type: 
  Country: None (occurrence: None)
  Receive Date: 20111201
  Receipt Date: 20111121
  Transmission Date: 20120403
  Serious: Yes (Hospitalization)
  Sender: FDA-Public Use
  Company Number: US-JNJFOC-20111109768

PATIENT
  Sex: Female
  Weight: 115.67 kg

DRUGS (3)
  1. GOLIMUMAB [Suspect]
     Indication: PSORIASIS
     Route: 058
  2. USTEKINUMAB [Suspect]
     Indication: PSORIASIS
     Route: 058
     Dates: start: 20100401
  3. METHOTREXATE [Suspect]
     Indication: PSORIASIS

REACTIONS (3)
  - INTESTINAL OBSTRUCTION [None]
  - GASTROINTESTINAL HAEMORRHAGE [None]
  - COLITIS [None]
